FAERS Safety Report 10559513 (Version 1)
Quarter: 2014Q4

REPORT INFORMATION
  Report Type: Spontaneous
  Country: US (occurrence: None)
  Receive Date: 20141031
  Receipt Date: 20141031
  Transmission Date: 20150529
  Serious: Yes (Hospitalization)
  Sender: FDA-Public Use
  Company Number: None

PATIENT
  Age: 42 Year
  Sex: Female
  Weight: 104.33 kg

DRUGS (1)
  1. PRILOSEC [Suspect]
     Active Substance: OMEPRAZOLE MAGNESIUM
     Indication: SINUS DISORDER
     Dosage: 2 PILLS?TWICE DAILY ?TAKEN BY MOUTH
     Route: 048

REACTIONS (2)
  - Coma [None]
  - Seizure [None]

NARRATIVE: CASE EVENT DATE: 20051230
